FAERS Safety Report 21904213 (Version 2)
Quarter: 2023Q1

REPORT INFORMATION
  Report Type: Report from Study
  Country: CA (occurrence: CA)
  Receive Date: 20230124
  Receipt Date: 20230126
  Transmission Date: 20230417
  Serious: Yes (Hospitalization, Other)
  Sender: FDA-Public Use
  Company Number: CA-BEH-2023154409

PATIENT
  Age: 68 Year
  Sex: Female
  Weight: 97 kg

DRUGS (10)
  1. HAEMATE P [Suspect]
     Active Substance: ANTIHEMOPHILIC FACTOR HUMAN
     Indication: Von Willebrand^s disease
     Dosage: 4000 INTERNATIONAL UNIT, QD, FOR 5 DAYS
     Route: 042
     Dates: start: 20221227
  2. HAEMATE P [Suspect]
     Active Substance: ANTIHEMOPHILIC FACTOR HUMAN
     Indication: Prophylaxis
     Dosage: 4000 INTERNATIONAL UNIT, EVERY OTHER DAY FOR 5 DAYS
     Route: 042
  3. HAEMATE P [Suspect]
     Active Substance: ANTIHEMOPHILIC FACTOR HUMAN
     Dosage: UNK
     Route: 042
     Dates: start: 20230113
  4. HAEMATE P [Suspect]
     Active Substance: ANTIHEMOPHILIC FACTOR HUMAN
     Dosage: 4000 INTERNATIONAL UNIT, OD
     Route: 042
     Dates: start: 20230115
  5. HAEMATE P [Suspect]
     Active Substance: ANTIHEMOPHILIC FACTOR HUMAN
     Dosage: 4000 INTERNATIONAL UNIT, QD
     Route: 042
     Dates: start: 20230116
  6. SERTRALINE [Concomitant]
     Active Substance: SERTRALINE HYDROCHLORIDE
  7. SYNJARDY [Concomitant]
     Active Substance: EMPAGLIFLOZIN\METFORMIN HYDROCHLORIDE
  8. GLICLAZIDE [Concomitant]
     Active Substance: GLICLAZIDE
  9. ATORVASTATIN [Concomitant]
     Active Substance: ATORVASTATIN
  10. VIT B1 [THIAMINE HYDROCHLORIDE] [Concomitant]

REACTIONS (6)
  - Infusion site erythema [Unknown]
  - Cognitive disorder [Recovering/Resolving]
  - Aphasia [Recovering/Resolving]
  - Mental impairment [Recovering/Resolving]
  - Fear [Unknown]
  - Seizure [Unknown]

NARRATIVE: CASE EVENT DATE: 20230101
